FAERS Safety Report 9803762 (Version 1)
Quarter: 2014Q1

REPORT INFORMATION
  Report Type: Spontaneous
  Country: US (occurrence: US)
  Receive Date: 20140108
  Receipt Date: 20140108
  Transmission Date: 20141002
  Serious: No
  Sender: FDA-Public Use
  Company Number: US-GLAXOSMITHKLINE-A1034227A

PATIENT
  Age: 62 Year
  Sex: Male

DRUGS (3)
  1. LOVAZA [Suspect]
     Indication: HYPERCHLORHYDRIA
     Dosage: 1CAP PER DAY
     Route: 048
     Dates: start: 20130719
  2. HYDROCODONE [Concomitant]
  3. NEXIUM [Concomitant]

REACTIONS (1)
  - Off label use [Not Recovered/Not Resolved]
